FAERS Safety Report 9267172 (Version 1)
Quarter: 2013Q2

REPORT INFORMATION
  Report Type: Spontaneous
  Country: US (occurrence: US)
  Receive Date: 20130502
  Receipt Date: 20130502
  Transmission Date: 20140414
  Serious: Yes (Hospitalization)
  Sender: FDA-Public Use
  Company Number: US-SANOFI-AVENTIS-2013SA044069

PATIENT
  Age: 80 Year
  Sex: Male

DRUGS (11)
  1. PLAVIX [Suspect]
     Indication: STENT PLACEMENT
  2. SPRYCEL [Suspect]
     Indication: CHRONIC MYELOID LEUKAEMIA
     Route: 048
     Dates: start: 20130325, end: 20130416
  3. TAMSULOSIN [Concomitant]
  4. HYDRALAZINE [Concomitant]
  5. PROTONIX [Concomitant]
  6. LIPITOR [Concomitant]
  7. CAPTOPRIL [Concomitant]
  8. TOPROL XL [Concomitant]
  9. TIOTROPIUM BROMIDE [Concomitant]
  10. NOVOLOG [Concomitant]
  11. LANTUS [Concomitant]

REACTIONS (3)
  - Myocardial infarction [Unknown]
  - Back pain [Unknown]
  - Nausea [Unknown]
